FAERS Safety Report 8458498-8 (Version None)
Quarter: 2012Q2

REPORT INFORMATION
  Report Type: 
  Country: None (occurrence: None)
  Receive Date: 20120622
  Receipt Date: 20120611
  Transmission Date: 20120825
  Serious: Yes (Other)
  Sender: FDA-Public Use
  Company Number: JP-ELI_LILLY_AND_COMPANY-JP201206005380

PATIENT
  Age: 85 Year
  Sex: Female

DRUGS (6)
  1. ZOLPIDEM [Concomitant]
     Route: 048
  2. AMLODIPINE [Concomitant]
     Route: 048
  3. CELEBREX [Concomitant]
     Route: 048
  4. MUCOSTA [Concomitant]
  5. FORTEO [Suspect]
     Dosage: UNK
     Route: 058
     Dates: start: 20120214
  6. ONEALFA [Concomitant]
     Route: 048

REACTIONS (6)
  - POLLAKIURIA [None]
  - URINE ODOUR ABNORMAL [None]
  - RENAL IMPAIRMENT [None]
  - DYSURIA [None]
  - DECREASED APPETITE [None]
  - URINARY RETENTION [None]
